FAERS Safety Report 7395783-5 (Version None)
Quarter: 2011Q2

REPORT INFORMATION
  Report Type: 
  Country: None (occurrence: None)
  Receive Date: 20110405
  Receipt Date: 20110325
  Transmission Date: 20111010
  Serious: Yes (Hospitalization)
  Sender: FDA-Public Use
  Company Number: JP-MERCK-1103USA03772

PATIENT
  Age: 87 Year
  Sex: Female

DRUGS (13)
  1. GASLON [Concomitant]
     Route: 048
  2. KETOPROFEN [Concomitant]
     Route: 061
  3. CELECOX [Concomitant]
     Route: 048
     Dates: start: 20110202, end: 20110221
  4. MAGMITT [Concomitant]
     Route: 048
     Dates: start: 20110202
  5. EVISTA [Concomitant]
     Route: 048
     Dates: start: 20110202, end: 20110208
  6. SELBEX [Concomitant]
     Route: 048
     Dates: start: 20110202, end: 20110221
  7. ETODOLAC [Concomitant]
     Route: 048
  8. ALSIODOL [Concomitant]
     Route: 048
  9. MYSLEE [Concomitant]
     Route: 048
  10. FOSAMAX [Suspect]
     Indication: OSTEOPOROSIS
     Route: 048
     Dates: start: 20090101, end: 20110131
  11. CALFINA [Concomitant]
     Route: 048
     Dates: start: 20110202
  12. MYSLEE [Concomitant]
     Route: 048
  13. LORCAM [Concomitant]
     Route: 048
     Dates: start: 20110202

REACTIONS (1)
  - FEMUR FRACTURE [None]
